FAERS Safety Report 6252237-7 (Version None)
Quarter: 2009Q2

REPORT INFORMATION
  Report Type: 
  Country: None (occurrence: None)
  Receive Date: 20090629
  Receipt Date: 20090615
  Transmission Date: 20091009
  Serious: Yes (Other)
  Sender: FDA-Public Use
  Company Number: RENA-1000481

PATIENT
  Age: 64 Year

DRUGS (4)
  1. RENAGEL [Suspect]
     Indication: HYPERPHOSPHATAEMIA
     Dosage: 1 G, TID, ORAL
     Route: 048
     Dates: start: 20090301, end: 20090601
  2. BAKTAR (SULFAMETHOXAZOLE, TRIMETHOPRIM) TABLET [Concomitant]
  3. LASIX [Concomitant]
  4. CALCIUM CARBONATE (CALCIUM CARBONATE) TABLET [Concomitant]

REACTIONS (1)
  - HEPATIC FUNCTION ABNORMAL [None]
